FAERS Safety Report 17363648 (Version 2)
Quarter: 2020Q1

REPORT INFORMATION
  Report Type: Spontaneous
  Country: FR (occurrence: FR)
  Receive Date: 20200203
  Receipt Date: 20200218
  Transmission Date: 20200409
  Serious: Yes (Other)
  Sender: FDA-Public Use
  Company Number: FR-SA-2020SA022682

PATIENT
  Age: 2 Month
  Sex: Male
  Weight: 1.72 kg

DRUGS (7)
  1. PARACETAMOL [Suspect]
     Active Substance: ACETAMINOPHEN
     Indication: PAIN
     Dosage: 30 MG/KG, QD
     Route: 042
     Dates: start: 201911, end: 20200102
  2. CEFOTAXIME SODIUM [Suspect]
     Active Substance: CEFOTAXIME SODIUM
     Indication: SEPSIS
     Dosage: UNK
     Route: 042
     Dates: start: 20191226, end: 20191230
  3. AMPHOTERICIN B/TETRACYCLINE [Suspect]
     Active Substance: AMPHOTERICIN B\TETRACYCLINE
     Indication: CANDIDA INFECTION
     Dosage: UNK
     Route: 042
     Dates: start: 20191227, end: 20200102
  4. VANCOMYCIN [Suspect]
     Active Substance: VANCOMYCIN
     Indication: SEPSIS
     Dosage: UNK
     Route: 042
     Dates: start: 20191220, end: 20191230
  5. JOSAMYCIN [Suspect]
     Active Substance: JOSAMYCIN
     Indication: SEPSIS
     Dosage: 1.5 ML, QD
     Route: 048
     Dates: start: 20191210, end: 20191226
  6. FLUCONAZOLE. [Suspect]
     Active Substance: FLUCONAZOLE
     Indication: CANDIDA INFECTION
     Dosage: UNK
     Route: 042
     Dates: start: 20191224, end: 20191227
  7. GENTAMICIN SULFATE. [Suspect]
     Active Substance: GENTAMICIN SULFATE
     Indication: SEPSIS
     Dosage: UNK
     Route: 042
     Dates: start: 20191220, end: 20191222

REACTIONS (2)
  - Hypertransaminasaemia [Not Recovered/Not Resolved]
  - Gamma-glutamyltransferase increased [Not Recovered/Not Resolved]

NARRATIVE: CASE EVENT DATE: 20200102
